FAERS Safety Report 8966545 (Version 2)
Quarter: 2013Q2

REPORT INFORMATION
  Report Type: Report from Study
  Country: DE (occurrence: DE)
  Receive Date: 20121217
  Receipt Date: 20130625
  Transmission Date: 20140414
  Serious: Yes (Disabling)
  Sender: FDA-Public Use
  Company Number: DE-SANOFI-AVENTIS-2012SA091941

PATIENT
  Age: 60 Year
  Sex: Male
  Weight: 108 kg

DRUGS (5)
  1. MULTAQ [Suspect]
     Indication: ATRIAL FIBRILLATION
     Route: 048
     Dates: start: 20120429
  2. METOPROLOL [Concomitant]
  3. ACETYLDIGITOXIN [Concomitant]
  4. BETA BLOCKING AGENTS [Concomitant]
     Dates: start: 201008
  5. ALL OTHER THERAPEUTIC PRODUCTS [Concomitant]
     Indication: ANTICOAGULANT THERAPY

REACTIONS (4)
  - Cardiac failure [Recovered/Resolved]
  - Dyspnoea [Recovered/Resolved]
  - Atrial fibrillation [Recovered/Resolved]
  - Alanine aminotransferase increased [Recovering/Resolving]
